FAERS Safety Report 9527834 (Version 4)
Quarter: 2013Q4

REPORT INFORMATION
  Report Type: Spontaneous
  Country: US (occurrence: US)
  Receive Date: 20130917
  Receipt Date: 20131111
  Transmission Date: 20140711
  Serious: Yes (Other)
  Sender: FDA-Public Use
  Company Number: US-PFIZER INC-2013260247

PATIENT
  Age: 73 Year
  Sex: Female
  Weight: 64 kg

DRUGS (6)
  1. XALATAN [Suspect]
     Indication: INTRAOCULAR PRESSURE INCREASED
     Dosage: 1 GTT, UNK
     Dates: start: 2013
  2. XALATAN [Suspect]
  3. XALATAN [Suspect]
  4. XALATAN [Suspect]
  5. LATANOPROST [Suspect]
     Indication: INTRAOCULAR PRESSURE INCREASED
     Dosage: UNK
     Route: 047
  6. LATANOPROST [Suspect]
     Indication: GLAUCOMA

REACTIONS (4)
  - Drug ineffective [Unknown]
  - Intraocular pressure increased [Unknown]
  - Incorrect dose administered [Unknown]
  - Product quality issue [Unknown]
